FAERS Safety Report 4291416-5 (Version None)
Quarter: 2004Q1

REPORT INFORMATION
  Report Type: 
  Country: None (occurrence: None)
  Receive Date: 20040211
  Receipt Date: 20040204
  Transmission Date: 20041129
  Serious: Yes (Death, Hospitalization)
  Sender: FDA-Public Use
  Company Number: PHBS2004SE01725

PATIENT
  Age: 16 Year
  Sex: Male

DRUGS (7)
  1. VOLTAREN [Suspect]
     Indication: BACK PAIN
     Dosage: 50 MG, PRN
     Route: 048
     Dates: start: 20020401, end: 20030607
  2. ZOLOFT [Suspect]
     Indication: DEPRESSION
     Dosage: 50 MG/DAY
     Route: 048
     Dates: start: 20010823, end: 20030422
  3. NEORAL [Concomitant]
     Dosage: 100 MG/DAY
     Route: 048
  4. ALVEDON [Concomitant]
  5. PREDNISOLONE [Concomitant]
     Dosage: 5 MG/DAY
  6. ATARAX [Concomitant]
     Dosage: 25 MG/DAY
  7. OXYNORM [Concomitant]
     Dosage: 1 MG/ML/DAY

REACTIONS (22)
  - ABDOMINAL DISTENSION [None]
  - ABDOMINAL PAIN [None]
  - ALANINE AMINOTRANSFERASE INCREASED [None]
  - ASPARTATE AMINOTRANSFERASE INCREASED [None]
  - BLOOD ALKALINE PHOSPHATASE INCREASED [None]
  - BLOOD BILIRUBIN INCREASED [None]
  - BLOOD CREATININE INCREASED [None]
  - BLOOD UREA INCREASED [None]
  - CARDIAC TAMPONADE [None]
  - DIARRHOEA [None]
  - EPSTEIN-BARR VIRUS INFECTION [None]
  - FLANK PAIN [None]
  - GAMMA-GLUTAMYLTRANSFERASE INCREASED [None]
  - HAEMATOCHEZIA [None]
  - HAEMOGLOBIN INCREASED [None]
  - HEADACHE [None]
  - HEPATIC FAILURE [None]
  - JAUNDICE [None]
  - LIVER PALPABLE SUBCOSTAL [None]
  - LIVER TRANSPLANT [None]
  - RENAL FAILURE [None]
  - SPLENOMEGALY [None]
